FAERS Safety Report 5678183-5 (Version None)
Quarter: 2008Q1

REPORT INFORMATION
  Report Type: 
  Country: None (occurrence: None)
  Receive Date: 20080325
  Receipt Date: 20080317
  Transmission Date: 20080703
  Serious: Yes (Death)
  Sender: FDA-Public Use
  Company Number: AU-JNJFOC-20080304436

PATIENT
  Sex: Male

DRUGS (1)
  1. REOPRO [Suspect]
     Indication: STENT PLACEMENT

REACTIONS (1)
  - HAEMORRHAGE [None]
